FAERS Safety Report 8976235 (Version 3)
Quarter: 2013Q1

REPORT INFORMATION
  Report Type: Spontaneous
  Country: BR (occurrence: BR)
  Receive Date: 20121220
  Receipt Date: 20130208
  Transmission Date: 20140127
  Serious: Yes (Other)
  Sender: FDA-Public Use
  Company Number: BR-AMGEN-BRACT2012000674

PATIENT
  Age: 74 Year
  Sex: Female
  Weight: 61 kg

DRUGS (8)
  1. ENBREL [Suspect]
     Indication: RHEUMATOID ARTHRITIS
     Dosage: 25 MG, 2 TIMES/WK
     Route: 058
     Dates: start: 20081010
  2. PANTOPRAZOLE [Concomitant]
     Dosage: UNK
  3. LOSARTAN [Concomitant]
     Dosage: UNK
  4. CALCORT [Concomitant]
     Dosage: UNK
  5. ALENDRONATE SODIUM [Concomitant]
     Indication: OSTEOPOROSIS
     Dosage: UNK
  6. PURAN T4 [Concomitant]
     Indication: THYROID DISORDER
     Dosage: UNK
  7. CALCIUM [Concomitant]
     Indication: OSTEOPOROSIS
     Dosage: UNK
  8. VITAMIN A /00056001/ [Concomitant]
     Dosage: UNK

REACTIONS (5)
  - Urinary tract infection [Unknown]
  - Bacteriuria [Not Recovered/Not Resolved]
  - Gait disturbance [Unknown]
  - Pain [Unknown]
  - Drug ineffective [Unknown]
